FAERS Safety Report 4994414-9 (Version None)
Quarter: 2006Q1

REPORT INFORMATION
  Report Type: 
  Country: None (occurrence: None)
  Receive Date: 20060310
  Receipt Date: 20060117
  Transmission Date: 20060701
  Serious: No
  Sender: FDA-Public Use
  Company Number: IND-AE-06-SAN-005

PATIENT
  Age: 81 Year
  Sex: Male
  Weight: 93.441 kg

DRUGS (1)
  1. SANCTURA [Suspect]
     Indication: MICTURITION URGENCY

REACTIONS (3)
  - DRY MOUTH [None]
  - FLUSHING [None]
  - PRURITUS [None]
